FAERS Safety Report 8818668 (Version 2)
Quarter: 2012Q4

REPORT INFORMATION
  Report Type: 
  Country: FR (occurrence: FR)
  Receive Date: 20121001
  Receipt Date: 20121210
  Transmission Date: 20130627
  Serious: Yes (Other)
  Sender: FDA-Public Use
  Company Number: PHHY2012FR085077

PATIENT
  Age: 72 Year
  Sex: Female

DRUGS (3)
  1. ACLASTA [Suspect]
     Indication: OSTEOPOROTIC FRACTURE
     Dosage: 5 mg/100ml
     Route: 042
     Dates: start: 20120814
  2. CORDARONE [Concomitant]
  3. UVEDOSE [Concomitant]
     Dosage: UNK UKN, UNK
     Dates: start: 20121030

REACTIONS (8)
  - Chest pain [Recovered/Resolved]
  - Influenza like illness [Recovered/Resolved]
  - Blood parathyroid hormone increased [Unknown]
  - Creatinine renal clearance decreased [Unknown]
  - Headache [Recovered/Resolved]
  - Spinal pain [Recovered/Resolved]
  - Bone pain [Recovered/Resolved]
  - Fluid intake reduced [Unknown]
